FAERS Safety Report 4933679-6 (Version None)
Quarter: 2006Q1

REPORT INFORMATION
  Report Type: 
  Country: None (occurrence: None)
  Receive Date: 20060117
  Receipt Date: 20051004
  Transmission Date: 20060701
  Serious: Yes (Other)
  Sender: FDA-Public Use
  Company Number: 2005097985

PATIENT
  Age: 77 Year
  Sex: Male

DRUGS (4)
  1. MACUGEN [Suspect]
     Indication: MACULAR DEGENERATION
     Dosage: 0.09 CC (0.09 CC, ONCE) INTRAVITREOUS
     Dates: start: 20050630
  2. ASPIRIN [Concomitant]
  3. MULTIVITAMIN [Concomitant]
  4. ANTIBIOTICS (ANTIBIOTICS) [Concomitant]

REACTIONS (2)
  - ENDOPHTHALMITIS [None]
  - RETINAL DETACHMENT [None]
